FAERS Safety Report 7276380-9 (Version None)
Quarter: 2011Q1

REPORT INFORMATION
  Report Type: 
  Country: None (occurrence: None)
  Receive Date: 20110204
  Receipt Date: 20110128
  Transmission Date: 20110831
  Serious: Yes (Other)
  Sender: FDA-Public Use
  Company Number: DE-PFIZER INC-2011020609

PATIENT
  Age: 28 Year
  Sex: Female

DRUGS (1)
  1. SAYANA [Suspect]
     Dosage: 1 DF, UNK
     Dates: start: 20110126

REACTIONS (2)
  - INJECTION SITE INDURATION [None]
  - INJECTION SITE ERYTHEMA [None]
